APPROVED DRUG PRODUCT: CARDIZEM CD
Active Ingredient: DILTIAZEM HYDROCHLORIDE
Strength: 180MG
Dosage Form/Route: CAPSULE, EXTENDED RELEASE;ORAL
Application: N020062 | Product #002 | TE Code: AB3
Applicant: BAUSCH HEALTH US LLC
Approved: Dec 27, 1991 | RLD: Yes | RS: No | Type: RX